FAERS Safety Report 10388305 (Version 1)
Quarter: 2014Q3

REPORT INFORMATION
  Report Type: Spontaneous
  Country: GB (occurrence: GB)
  Receive Date: 20140815
  Receipt Date: 20140815
  Transmission Date: 20150326
  Serious: Yes (Hospitalization)
  Sender: FDA-Public Use
  Company Number: GB-GLAXOSMITHKLINE-B1022098A

PATIENT
  Age: 62 Year
  Sex: Male

DRUGS (7)
  1. ATORVASTATIN [Concomitant]
     Active Substance: ATORVASTATIN
  2. FLUOXETINE [Concomitant]
     Active Substance: FLUOXETINE\FLUOXETINE HYDROCHLORIDE
  3. METFORMIN [Concomitant]
     Active Substance: METFORMIN HYDROCHLORIDE
  4. ORLISTAT [Suspect]
     Active Substance: ORLISTAT
     Indication: OBESITY
     Dosage: 360MG PER DAY
     Route: 048
     Dates: start: 20130904, end: 20140723
  5. FUROSEMIDE. [Concomitant]
     Active Substance: FUROSEMIDE
  6. COCODAMOL [Concomitant]
     Active Substance: ACETAMINOPHEN\CODEINE PHOSPHATE
  7. NICOTINELL [Concomitant]
     Active Substance: NICOTINE

REACTIONS (3)
  - Renal tubular necrosis [Unknown]
  - Nephropathy [Not Recovered/Not Resolved]
  - Renal failure acute [Unknown]

NARRATIVE: CASE EVENT DATE: 20140721
